FAERS Safety Report 9507765 (Version 1)
Quarter: 2013Q1

REPORT INFORMATION
  Report Type: Spontaneous
  Country: US (occurrence: None)
  Receive Date: 20130305
  Receipt Date: 20130305
  Transmission Date: 20140127
  Serious: Yes (Other)
  Sender: FDA-Public Use
  Company Number: 163-21880-12050730

PATIENT
  Age: 77 Year
  Sex: Female

DRUGS (6)
  1. REVLIMID (LENALIDOMIDE) (25 MILLIGRAM, CAPSULES) [Suspect]
     Indication: PLASMA CELL MYELOMA
     Dosage: 25 MG, 21 IN 28 D, PO
     Route: 048
     Dates: start: 20120221
  2. DEXAMETHASONE [Concomitant]
  3. MULTIVITAMINS [Concomitant]
  4. ASPIRIN (ACETYLSALICYLIC ACID ) ( UNKNOWN) [Concomitant]
  5. VITAMIN D (ERGOCALC IFEROL) (UNKNOWN) [Concomitant]
  6. ZOMETA ( ZOLDRONIC ACID) ( UNKNOWN) [Concomitant]

REACTIONS (3)
  - Malaise [None]
  - Diarrhoea [None]
  - Fatigue [None]
